FAERS Safety Report 10235922 (Version 1)
Quarter: 2014Q2

REPORT INFORMATION
  Report Type: Spontaneous
  Country: CN (occurrence: None)
  Receive Date: 20140611
  Receipt Date: 20140611
  Transmission Date: 20141212
  Serious: Yes (Other)
  Sender: FDA-Public Use
  Company Number: FK201402189

PATIENT
  Age: 67 Year
  Sex: Female

DRUGS (2)
  1. INTRALIPID (LIPID EMULSION) (LIPID EMULSION) [Suspect]
     Indication: NUTRITIONAL SUPPLEMENTATION
     Route: 041
     Dates: start: 20131227, end: 20131227
  2. INSULIN [Suspect]
     Indication: PRODUCT USED FOR UNKNOWN INDICATION
     Route: 041
     Dates: start: 20131227, end: 20131227

REACTIONS (3)
  - Hypoglycaemia [None]
  - Shock [None]
  - Loss of consciousness [None]
